FAERS Safety Report 19445036 (Version 3)
Quarter: 2021Q4

REPORT INFORMATION
  Report Type: Spontaneous
  Country: US (occurrence: US)
  Receive Date: 20210622
  Receipt Date: 20211022
  Transmission Date: 20220303
  Serious: No
  Sender: FDA-Public Use
  Company Number: US-ETHYPHARM-2021000909

PATIENT
  Sex: Male

DRUGS (1)
  1. BUPRENORPHINE [Suspect]
     Active Substance: BUPRENORPHINE
     Dosage: EXPIRY DATE: 31/MAY/2021
     Route: 060

REACTIONS (4)
  - Product use complaint [Recovered/Resolved]
  - Product use complaint [Recovered/Resolved]
  - Product complaint [Recovered/Resolved]
  - Expired product administered [Recovered/Resolved]
